FAERS Safety Report 15605459 (Version 2)
Quarter: 2018Q4

REPORT INFORMATION
  Report Type: Spontaneous
  Country: US (occurrence: US)
  Receive Date: 20181112
  Receipt Date: 20181116
  Transmission Date: 20190205
  Serious: Yes (Other)
  Sender: FDA-Public Use
  Company Number: US-BRISTOL-MYERS SQUIBB COMPANY-BMS-2018-104807

PATIENT
  Sex: Female

DRUGS (1)
  1. ELIQUIS [Suspect]
     Active Substance: APIXABAN
     Indication: PRODUCT USED FOR UNKNOWN INDICATION
     Dosage: UNK
     Route: 065
     Dates: start: 201709

REACTIONS (8)
  - Pulmonary embolism [Unknown]
  - Hangnail [Unknown]
  - Anxiety [Unknown]
  - Skin laceration [Unknown]
  - Tooth disorder [Unknown]
  - Contusion [Unknown]
  - Haemorrhage [Unknown]
  - Deep vein thrombosis [Unknown]
